FAERS Safety Report 13163289 (Version 1)
Quarter: 2017Q1

REPORT INFORMATION
  Report Type: Spontaneous
  Country: US (occurrence: US)
  Receive Date: 20170129
  Receipt Date: 20170129
  Transmission Date: 20170428
  Serious: Yes (Other)
  Sender: FDA-Public Use
  Company Number: None

PATIENT
  Age: 60 Year
  Sex: Male
  Weight: 79.65 kg

DRUGS (7)
  1. COQ10 [Concomitant]
     Active Substance: UBIDECARENONE
  2. JANUVIA [Suspect]
     Active Substance: SITAGLIPTIN PHOSPHATE
     Indication: TYPE 2 DIABETES MELLITUS
     Route: 048
     Dates: start: 20161205, end: 20161229
  3. METPHORMIN [Concomitant]
  4. FISH OIL [Concomitant]
     Active Substance: FISH OIL
  5. LISOPRINAL [Concomitant]
  6. BABY ASPIRIN [Concomitant]
     Active Substance: ASPIRIN
  7. CONDROITIN [Concomitant]

REACTIONS (2)
  - Arthralgia [None]
  - Musculoskeletal pain [None]

NARRATIVE: CASE EVENT DATE: 20161228
